FAERS Safety Report 24651446 (Version 1)
Quarter: 2024Q4

REPORT INFORMATION
  Report Type: Spontaneous
  Country: US (occurrence: US)
  Receive Date: 20241122
  Receipt Date: 20241122
  Transmission Date: 20250114
  Serious: Yes (Hospitalization, Other)
  Sender: LUPIN
  Company Number: US-LUPIN PHARMACEUTICALS INC.-2024-11349

PATIENT
  Age: 47 Year
  Sex: Male

DRUGS (1)
  1. BUPROPION [Suspect]
     Active Substance: BUPROPION
     Indication: Depression
     Dosage: 150 MILLIGRAM (EXTENDED-RELEASE)
     Route: 065

REACTIONS (3)
  - Hypertension [Unknown]
  - Chest pain [Recovered/Resolved]
  - Neck pain [Recovered/Resolved]
